FAERS Safety Report 21998321 (Version 1)
Quarter: 2023Q1

REPORT INFORMATION
  Report Type: Spontaneous
  Country: FR (occurrence: FR)
  Receive Date: 20230216
  Receipt Date: 20230216
  Transmission Date: 20230417
  Serious: Yes (Other)
  Sender: FDA-Public Use
  Company Number: FR-AFSSAPS-AVMP2023000060

PATIENT
  Age: 21 Year
  Sex: Female

DRUGS (3)
  1. DIAZEPAM [Suspect]
     Active Substance: DIAZEPAM
     Indication: Product used for unknown indication
     Dosage: UNK (JUSQU^? 06 COMPRIM?S PAR JOUR)
     Route: 048
  2. MIRTAZAPINE [Suspect]
     Active Substance: MIRTAZAPINE
     Indication: Product used for unknown indication
     Dosage: UNK (04 COMPRIM?S PAR JOUR)
     Route: 048
  3. VENLAFAXINE [Suspect]
     Active Substance: VENLAFAXINE HYDROCHLORIDE
     Indication: Product used for unknown indication
     Dosage: UNK (5 ? 6 COMPRIM?S PAE JOUR)
     Route: 048

REACTIONS (2)
  - Drug dependence [Recovering/Resolving]
  - Intentional product misuse [Recovering/Resolving]
